FAERS Safety Report 11735089 (Version 2)
Quarter: 2015Q4

REPORT INFORMATION
  Report Type: Report from Study
  Country: US (occurrence: US)
  Receive Date: 20151113
  Receipt Date: 20151218
  Transmission Date: 20160304
  Serious: Yes (Death, Life-Threatening, Hospitalization)
  Sender: FDA-Public Use
  Company Number: US-BIOVITRUM-2015US0674

PATIENT
  Age: 25 Year
  Sex: Female

DRUGS (1)
  1. PALIFERMIN [Suspect]
     Active Substance: PALIFERMIN
     Indication: STOMATITIS
     Dosage: 60 MICROGRAM/KG/DAY FOR 3 CONSECUTIVE DAYS 10 DAYS PRE TRANSPLANT AND 3 CONSECUTIVE DAYS STARTING ON
     Route: 042
     Dates: start: 20150516, end: 20150517

REACTIONS (7)
  - Pseudomonal sepsis [None]
  - Sepsis [Fatal]
  - Hypotension [Not Recovered/Not Resolved]
  - Mucosal inflammation [None]
  - Febrile neutropenia [Not Recovered/Not Resolved]
  - Multi-organ failure [None]
  - Hypoxia [Not Recovered/Not Resolved]

NARRATIVE: CASE EVENT DATE: 20150528
